FAERS Safety Report 10068123 (Version 2)
Quarter: 2014Q2

REPORT INFORMATION
  Report Type: Spontaneous
  Country: US (occurrence: US)
  Receive Date: 20140409
  Receipt Date: 20140506
  Transmission Date: 20141212
  Serious: No
  Sender: FDA-Public Use
  Company Number: US-PFIZER INC-2014096466

PATIENT
  Age: 71 Year
  Sex: Male

DRUGS (33)
  1. COZAAR [Concomitant]
     Dosage: 100 MG, DAILY
     Route: 048
  2. METOPROLOL TARTRATE [Concomitant]
     Dosage: 50 MG, 2X/DAY
     Route: 048
  3. METOPROLOL TARTRATE [Concomitant]
     Dosage: 25 MG, 3X/DAY
     Route: 048
     Dates: end: 20140320
  4. REMERON [Concomitant]
     Dosage: 7.5 MG, DAILY
     Route: 048
  5. PRILOSEC [Concomitant]
     Dosage: 40 MG, DAILY
     Route: 048
  6. POTASSIUM CHLORIDE [Concomitant]
     Dosage: 20 MEQ, DAILY
     Route: 048
  7. PRAVACHOL [Concomitant]
     Dosage: 80 MG, DAILY
     Route: 048
  8. PROCHLORPERAZINE MALEATE [Concomitant]
     Indication: NAUSEA
     Dosage: 10 MG, AS NEEDED (EVERY SIX HOURS)
     Route: 048
  9. PROCHLORPERAZINE MALEATE [Concomitant]
     Indication: VOMITING
  10. VENLAFAXINE HYDROCHLORIDE [Concomitant]
     Dosage: 75 MG, DAILY
     Route: 048
  11. VITAMIN D3 [Concomitant]
     Dosage: 81 MG, DAILY
     Route: 048
  12. LOSARTAN POTASSIUM W/HYDROCHLOROTHIAZIDE [Concomitant]
     Dosage: 50-12.5 MG, DAILY  ( TAKE 1.5 TABLET DAILY)
     Route: 048
     Dates: end: 20131023
  13. ZOCOR [Concomitant]
     Dosage: 20 MG, DAILY
     Route: 048
     Dates: end: 20131009
  14. TERAZOSIN HYDROCHLORIDE [Concomitant]
     Dosage: 5 MG, DAILY
     Route: 048
     Dates: end: 20140320
  15. VERAPAMIL HCL [Concomitant]
     Dosage: 5 MG, UNK (TAKE TABLET, CONTROLLED RELEASE)
     Route: 048
     Dates: end: 20131009
  16. TORISEL [Suspect]
     Indication: RENAL CELL CARCINOMA
     Dosage: 25 MG, WEEKLY, ONE DOSE
     Route: 042
     Dates: start: 20131016
  17. TORISEL [Suspect]
     Dosage: 20 MG, WEEKLY, ONE DOSE
     Dates: start: 20121106
  18. DIPHENHYDRAMINE HCL [Concomitant]
     Dosage: 50 MG, DAILY, SHORT OVER 20 MINUTES
     Dates: start: 20131016
  19. FAMOTIDINE [Concomitant]
     Dosage: UNK
     Dates: start: 20131016
  20. SODIUM CHLORIDE [Concomitant]
     Dosage: SODIUM 0.9% - CHLORIDE 250 ML, DAILY
     Route: 042
     Dates: start: 20131016
  21. SUTENT [Concomitant]
     Dosage: 2 DF, CYCLIC ( TAKE 2 TABLET EVERY DAY FOR 4 WEEKS, THEN OFF FOR 2 WEEKS)
     Route: 048
     Dates: end: 20131023
  22. XANAX [Concomitant]
     Dosage: 0.5 MG, 1X/DAY (AT BEDTIME)
     Route: 048
  23. PACERONE [Concomitant]
     Dosage: 200 MG, DAILY
     Route: 048
  24. NORVASC [Concomitant]
     Dosage: UNK,  DAILY (10 MG- TAKE 0.05 TABLET DAILY)
     Route: 048
  25. VITAMIN C [Concomitant]
     Dosage: 500 MG, DAILY
     Route: 048
  26. ASPIRIN [Concomitant]
     Dosage: 81 MG, DAILY
     Route: 048
  27. CALCITRIOL [Concomitant]
     Dosage: 1 DF, UNK ( TAKE 1 CAPSULE ON MONDAY, WEDNESDAY AND FRIDAY)
     Route: 048
  28. FISH OIL [Concomitant]
     Dosage: 1000 MG, DAILY
     Route: 048
  29. FUROSEMIDE [Concomitant]
     Dosage: 60 MG, DAILY (20MG- TAKE 3 TABLET DAILY)
     Route: 048
  30. FUROSEMIDE [Concomitant]
     Dosage: 40 MG, 2X/DAY
     Route: 048
     Dates: end: 20140417
  31. HYDRALAZINE HCL [Concomitant]
     Dosage: 25 MG, 4X/DAY (EVERY SIX HOURS)
     Route: 048
  32. HYDRALAZINE HCL [Concomitant]
     Dosage: 50 MG, 4X/DAY (25MG -TAKE 2 TABLETS BY MOUTH EVERY SIX HOURS DAILY)
     Route: 048
     Dates: end: 20140320
  33. HYDRALAZINE HCL [Concomitant]
     Dosage: 10 MG, 2X/DAY
     Route: 048
     Dates: end: 20140417

REACTIONS (3)
  - Blood triglycerides increased [Unknown]
  - Platelet count decreased [Recovered/Resolved]
  - Blood cholesterol increased [Not Recovered/Not Resolved]
